FAERS Safety Report 13618518 (Version 1)
Quarter: 2017Q2

REPORT INFORMATION
  Report Type: Spontaneous
  Country: CH (occurrence: CH)
  Receive Date: 20170606
  Receipt Date: 20170606
  Transmission Date: 20170830
  Serious: Yes (Other)
  Sender: FDA-Public Use
  Company Number: CH-MEDA-2017050101

PATIENT
  Age: 88 Year
  Sex: Male

DRUGS (13)
  1. OXYNORM [Concomitant]
     Active Substance: OXYCODONE HYDROCHLORIDE
     Dates: start: 20170418
  2. XATRAL [Concomitant]
     Active Substance: ALFUZOSIN
     Dates: start: 20170413
  3. BACTRIM [Concomitant]
     Active Substance: SULFAMETHOXAZOLE\TRIMETHOPRIM
     Dates: start: 20170505, end: 20170508
  4. TRIATEC [Suspect]
     Active Substance: RAMIPRIL
     Route: 048
     Dates: start: 20170404
  5. TOREM [Suspect]
     Active Substance: TORSEMIDE
     Route: 048
  6. ZYLORIC [Suspect]
     Active Substance: ALLOPURINOL
     Route: 048
  7. ASPIRIN CARDIO [Concomitant]
     Active Substance: ASPIRIN
  8. CORDARONE [Concomitant]
     Active Substance: AMIODARONE HYDROCHLORIDE
     Dates: end: 20170502
  9. CALCIMAGON-D3 [Concomitant]
     Active Substance: CALCIUM\CHOLECALCIFEROL
  10. TARGIN [Concomitant]
     Active Substance: NALOXONE HYDROCHLORIDE\OXYCODONE HYDROCHLORIDE
     Dates: start: 20170411, end: 20170418
  11. NORVASC [Concomitant]
     Active Substance: AMLODIPINE BESYLATE
  12. BELOC ZOK [Concomitant]
     Active Substance: METOPROLOL SUCCINATE
  13. CLEXANE [Concomitant]
     Active Substance: ENOXAPARIN SODIUM
     Dates: start: 20170329, end: 20170424

REACTIONS (2)
  - Drug interaction [Unknown]
  - Hepatocellular injury [Not Recovered/Not Resolved]

NARRATIVE: CASE EVENT DATE: 20170511
